FAERS Safety Report 19479022 (Version 1)
Quarter: 2021Q3

REPORT INFORMATION
  Report Type: Spontaneous
  Country: CN (occurrence: CN)
  Receive Date: 20210701
  Receipt Date: 20210701
  Transmission Date: 20211014
  Serious: Yes (Other)
  Sender: FDA-Public Use
  Company Number: CN-SA-2021SA206981

PATIENT
  Age: 47 Year
  Sex: Male
  Weight: 62 kg

DRUGS (2)
  1. ELOXATIN [Suspect]
     Active Substance: OXALIPLATIN
     Indication: GASTRIC CANCER
     Dosage: 150 MG, QD
     Route: 041
     Dates: start: 20210607, end: 20210607
  2. GLUCOSE [Concomitant]
     Active Substance: DEXTROSE
     Indication: GASTRIC CANCER
     Dosage: 250 ML
     Route: 041

REACTIONS (6)
  - Rash [Recovering/Resolving]
  - Dyspnoea [Recovering/Resolving]
  - Vomiting [Recovering/Resolving]
  - Ocular hyperaemia [Recovering/Resolving]
  - Nausea [Recovering/Resolving]
  - Hyperhidrosis [Recovering/Resolving]

NARRATIVE: CASE EVENT DATE: 20210607
